FAERS Safety Report 17605425 (Version 1)
Quarter: 2020Q1

REPORT INFORMATION
  Report Type: Spontaneous
  Country: US (occurrence: US)
  Receive Date: 20200330
  Receipt Date: 20200330
  Transmission Date: 20200409
  Serious: Yes (Death, Life-Threatening)
  Sender: FDA-Public Use
  Company Number: None

PATIENT
  Age: 87 Year
  Sex: Male
  Weight: 84.5 kg

DRUGS (2)
  1. AZITHROMYCIN 250 MG TABLET [Concomitant]
     Active Substance: AZITHROMYCIN ANHYDROUS
     Dates: start: 20200327, end: 20200327
  2. HYDROXYCHLOROQUINE [Suspect]
     Active Substance: HYDROXYCHLOROQUINE
     Indication: CORONA VIRUS INFECTION
     Dates: start: 20200324, end: 20200328

REACTIONS (4)
  - Electrocardiogram QT prolonged [None]
  - Coronavirus test positive [None]
  - Cough [None]
  - Urine odour abnormal [None]

NARRATIVE: CASE EVENT DATE: 20200327
